FAERS Safety Report 23554088 (Version 1)
Quarter: 2024Q1

REPORT INFORMATION
  Report Type: Spontaneous
  Country: US (occurrence: US)
  Receive Date: 20240222
  Receipt Date: 20240222
  Transmission Date: 20240410
  Serious: No
  Sender: FDA-Public Use
  Company Number: US-B.Braun Medical Inc.-2153559

PATIENT
  Age: 67 Year
  Sex: Female

DRUGS (1)
  1. SORBITOL [Suspect]
     Active Substance: SORBITOL

REACTIONS (2)
  - Hypersensitivity [Unknown]
  - Hypoaesthesia oral [Unknown]
